FAERS Safety Report 7008091-9 (Version None)
Quarter: 2010Q3

REPORT INFORMATION
  Report Type: 
  Country: None (occurrence: None)
  Receive Date: 20100922
  Receipt Date: 20100916
  Transmission Date: 20110219
  Serious: Yes (Hospitalization)
  Sender: FDA-Public Use
  Company Number: JP-SANOFI-AVENTIS-2010SA053392

PATIENT
  Age: 85 Year
  Sex: Male

DRUGS (1)
  1. TAXOTERE [Suspect]
     Indication: PROSTATE CANCER
     Dosage: STARTED ON 23-JAN-2010, AND THIS IS THE 5TH CYCLE.
     Route: 042
     Dates: start: 20100821

REACTIONS (1)
  - GASTROINTESTINAL OEDEMA [None]
